FAERS Safety Report 25069192 (Version 1)
Quarter: 2025Q1

REPORT INFORMATION
  Report Type: Spontaneous
  Country: JP (occurrence: JP)
  Receive Date: 20250312
  Receipt Date: 20250312
  Transmission Date: 20250409
  Serious: Yes (Other)
  Sender: AMGEN
  Company Number: JP-AMGEN-JPNSP2025026557

PATIENT

DRUGS (3)
  1. LUMAKRAS [Suspect]
     Active Substance: SOTORASIB
     Indication: K-ras gene mutation
     Route: 048
     Dates: start: 20241205, end: 202501
  2. LUMAKRAS [Suspect]
     Active Substance: SOTORASIB
     Indication: Non-small cell lung cancer
     Route: 048
     Dates: start: 2025, end: 2025
  3. LUMAKRAS [Suspect]
     Active Substance: SOTORASIB
     Route: 048
     Dates: start: 20250213, end: 2025

REACTIONS (3)
  - Non-small cell lung cancer [Unknown]
  - Liver disorder [Recovered/Resolved]
  - Therapeutic product effect incomplete [Unknown]
